FAERS Safety Report 7969371-3 (Version None)
Quarter: 2011Q4

REPORT INFORMATION
  Report Type: 
  Country: None (occurrence: None)
  Receive Date: 20111211
  Receipt Date: 20111102
  Transmission Date: 20120403
  Serious: Yes (Other)
  Sender: FDA-Public Use
  Company Number: PHHY2011US104784

PATIENT

DRUGS (3)
  1. RIBAVIRIN [Concomitant]
     Dosage: UNK UKN, UNK
  2. CYCLOSPORINE [Suspect]
     Indication: LIVER TRANSPLANT
     Dosage: UNK UKN, UNK
  3. PEGINTERFERON ALFA-2A [Concomitant]
     Dosage: UNK UKN, UNK

REACTIONS (2)
  - HEPATITIS C [None]
  - NEUTROPENIA [None]
